FAERS Safety Report 7578991-X (Version None)
Quarter: 2011Q2

REPORT INFORMATION
  Report Type: 
  Country: None (occurrence: None)
  Receive Date: 20110628
  Receipt Date: 20110617
  Transmission Date: 20111010
  Serious: Yes (Other)
  Sender: FDA-Public Use
  Company Number: JP-PFIZER INC-2011142421

PATIENT
  Age: 74 Year
  Sex: Male

DRUGS (3)
  1. METFORMIN HCL [Concomitant]
     Indication: DIABETES MELLITUS
     Dosage: UNK
     Route: 048
  2. VALSARTAN [Concomitant]
     Indication: HYPERTENSION
     Dosage: UNK
     Route: 048
  3. ATORVASTATIN CALCIUM [Suspect]
     Indication: HYPERCHOLESTEROLAEMIA
     Dosage: 10 MG, UID/QD
     Route: 048
     Dates: start: 20101215

REACTIONS (1)
  - DIABETES MELLITUS [None]
